FAERS Safety Report 14380294 (Version 2)
Quarter: 2018Q1

REPORT INFORMATION
  Report Type: Spontaneous
  Country: US (occurrence: US)
  Receive Date: 20180112
  Receipt Date: 20180321
  Transmission Date: 20180509
  Serious: Yes (Hospitalization, Other)
  Sender: FDA-Public Use
  Company Number: US-009507513-1111USA03162

PATIENT
  Sex: Female

DRUGS (5)
  1. ALENDRONATE SODIUM. [Suspect]
     Active Substance: ALENDRONATE SODIUM
     Indication: OSTEOPOROSIS
     Dosage: 70 MG, QW
     Route: 048
     Dates: start: 20110723
  2. FOSAMAX [Suspect]
     Active Substance: ALENDRONATE SODIUM
     Indication: OSTEOPOROSIS
     Dosage: 70 MG, UNK
     Route: 048
  3. ALENDRONATE SODIUM. [Suspect]
     Active Substance: ALENDRONATE SODIUM
     Indication: OSTEOPOROSIS
     Dosage: 70 MG, QW
     Route: 048
     Dates: start: 20081215
  4. FOSAMAX [Suspect]
     Active Substance: ALENDRONATE SODIUM
     Indication: OSTEOPOROSIS
     Dosage: UNK
     Route: 048
     Dates: start: 199905, end: 200910
  5. ALENDRONATE SODIUM. [Suspect]
     Active Substance: ALENDRONATE SODIUM
     Indication: OSTEOPOROSIS
     Dosage: 5 MG, QD
     Route: 048
     Dates: start: 20080519

REACTIONS (22)
  - Fall [Unknown]
  - Cerebrovascular disorder [Unknown]
  - Coronary artery disease [Unknown]
  - Impaired healing [Recovered/Resolved]
  - Lower limb fracture [Unknown]
  - Upper limb fracture [Unknown]
  - Plastic surgery to the face [Unknown]
  - Haemorrhage [Unknown]
  - Cerebrovascular accident [Unknown]
  - Laceration [Unknown]
  - Pain [Not Recovered/Not Resolved]
  - Ligament sprain [Recovering/Resolving]
  - Femur fracture [Recovered/Resolved]
  - Chronic obstructive pulmonary disease [Not Recovered/Not Resolved]
  - Back pain [Not Recovered/Not Resolved]
  - Injury [Unknown]
  - Uterine disorder [Unknown]
  - Limb deformity [Not Recovered/Not Resolved]
  - Accident [Unknown]
  - Drug dose omission [Unknown]
  - Hypotension [Unknown]
  - Anaemia of chronic disease [Not Recovered/Not Resolved]

NARRATIVE: CASE EVENT DATE: 20091026
